FAERS Safety Report 23768294 (Version 1)
Quarter: 2024Q2

REPORT INFORMATION
  Report Type: Spontaneous
  Country: US (occurrence: None)
  Receive Date: 20240419
  Receipt Date: 20240419
  Transmission Date: 20240716
  Serious: No
  Sender: FDA-Public Use
  Company Number: None

PATIENT
  Age: 78 Year
  Sex: Female

DRUGS (2)
  1. LOSARTAN [Suspect]
     Active Substance: LOSARTAN
     Indication: Product used for unknown indication
  2. TENORMIN [Suspect]
     Active Substance: ATENOLOL
     Indication: Product used for unknown indication
     Dosage: FREQUENCY : DAILY;?
     Route: 048

REACTIONS (8)
  - Hypertension [None]
  - Nervousness [None]
  - Vision blurred [None]
  - Musculoskeletal stiffness [None]
  - Muscle rigidity [None]
  - Impaired driving ability [None]
  - Cerebrovascular accident [None]
  - Transient ischaemic attack [None]

NARRATIVE: CASE EVENT DATE: 20240419
